FAERS Safety Report 9983560 (Version 1)
Quarter: 2014Q1

REPORT INFORMATION
  Report Type: Spontaneous
  Country: US (occurrence: US)
  Receive Date: 20140307
  Receipt Date: 20140307
  Transmission Date: 20141002
  Serious: Yes (Hospitalization, Other)
  Sender: FDA-Public Use
  Company Number: US-US-EMD SERONO, INC.-7273332

PATIENT
  Age: 41 Year
  Sex: Female

DRUGS (2)
  1. REBIF [Suspect]
     Indication: PRODUCT USED FOR UNKNOWN INDICATION
     Route: 058
     Dates: start: 201009, end: 20111104
  2. REBIF [Suspect]
     Route: 058
     Dates: start: 201207, end: 201310

REACTIONS (3)
  - Injection site ulcer [Not Recovered/Not Resolved]
  - Injection site infection [Recovered/Resolved]
  - Impaired healing [Unknown]
